FAERS Safety Report 21048878 (Version 2)
Quarter: 2022Q3

REPORT INFORMATION
  Report Type: Report from Study
  Country: US (occurrence: US)
  Receive Date: 20220706
  Receipt Date: 20220718
  Transmission Date: 20221026
  Serious: Yes (Hospitalization, Other)
  Sender: FDA-Public Use
  Company Number: US-HORIZON THERAPEUTICS-HZN-2022-004920

PATIENT

DRUGS (5)
  1. KRYSTEXXA [Suspect]
     Active Substance: PEGLOTICASE
     Indication: Gouty tophus
     Dosage: START OF INFUSION THERAPY TILL 10DEC2019
     Route: 042
     Dates: start: 20191001, end: 20191210
  2. KRYSTEXXA [Suspect]
     Active Substance: PEGLOTICASE
     Dosage: RESTART OF THERAPY-1ST INFUSION
     Route: 042
     Dates: start: 20220627
  3. KRYSTEXXA [Suspect]
     Active Substance: PEGLOTICASE
     Dosage: RESTART OF THERAPY-2ND INFUSION
     Route: 042
     Dates: start: 20220711
  4. METHOTREXATE [Concomitant]
     Active Substance: METHOTREXATE
  5. COLCHICINE [Concomitant]
     Active Substance: COLCHICINE

REACTIONS (6)
  - Myocardial infarction [Recovering/Resolving]
  - Vascular occlusion [Recovering/Resolving]
  - Blood uric acid abnormal [Recovering/Resolving]
  - Feeling hot [Recovering/Resolving]
  - Swelling face [Recovering/Resolving]
  - Incorrect drug administration rate [Unknown]

NARRATIVE: CASE EVENT DATE: 20220101
